FAERS Safety Report 8190389-2 (Version None)
Quarter: 2012Q1

REPORT INFORMATION
  Report Type: 
  Country: None (occurrence: None)
  Receive Date: 20120221
  Receipt Date: 20111227
  Transmission Date: 20120608
  Serious: No
  Sender: FDA-Public Use
  Company Number: 1000026605

PATIENT
  Sex: Female

DRUGS (2)
  1. VIIBRYD [Suspect]
     Dosage: 10 MG (10 MG,1 IN 1 D) : 20 MG (20 MG,1 IN 1 D)
     Dates: start: 20111225
  2. VIIBRYD [Suspect]
     Dosage: 10 MG (10 MG,1 IN 1 D) : 20 MG (20 MG,1 IN 1 D)
     Dates: start: 20111218, end: 20111224

REACTIONS (2)
  - DIZZINESS [None]
  - HEART RATE INCREASED [None]
